FAERS Safety Report 13567630 (Version 1)
Quarter: 2017Q2

REPORT INFORMATION
  Report Type: Spontaneous
  Country: US (occurrence: US)
  Receive Date: 20170521
  Receipt Date: 20170521
  Transmission Date: 20170830
  Serious: No
  Sender: FDA-Public Use
  Company Number: None

PATIENT
  Age: 63 Year
  Sex: Female

DRUGS (24)
  1. ENBREL [Suspect]
     Active Substance: ETANERCEPT
     Indication: RHEUMATOID ARTHRITIS
     Route: 058
     Dates: start: 200804
  2. AMLODIPINE [Concomitant]
     Active Substance: AMLODIPINE BESYLATE
  3. ACIPHEX [Concomitant]
     Active Substance: RABEPRAZOLE SODIUM
  4. CYMBALTA [Concomitant]
     Active Substance: DULOXETINE HYDROCHLORIDE
  5. PREDNISONE. [Concomitant]
     Active Substance: PREDNISONE
  6. TRUETEST [Concomitant]
  7. CORDRAN [Concomitant]
     Active Substance: FLURANDRENOLIDE
  8. NABUMETONE. [Concomitant]
     Active Substance: NABUMETONE
  9. FENTANYL. [Concomitant]
     Active Substance: FENTANYL
  10. NATURE-THROID [Concomitant]
     Active Substance: THYROID, PORCINE
  11. OXYRUB PAIN RELIEF [Concomitant]
     Active Substance: MENTHOL
  12. METOPROLOL TARTRATE. [Concomitant]
     Active Substance: METOPROLOL TARTRATE
  13. PREVACID [Concomitant]
     Active Substance: LANSOPRAZOLE
  14. LOVASTATIN. [Concomitant]
     Active Substance: LOVASTATIN
  15. OXYCODONE [Concomitant]
     Active Substance: OXYCODONE
  16. LYRICA [Concomitant]
     Active Substance: PREGABALIN
  17. OXAPROZIN. [Concomitant]
     Active Substance: OXAPROZIN
  18. VITAMIN B12 [Concomitant]
     Active Substance: CYANOCOBALAMIN
  19. RANITIDINE. [Concomitant]
     Active Substance: RANITIDINE
  20. OMEPRAZOLE. [Concomitant]
     Active Substance: OMEPRAZOLE
  21. SULINDAC. [Concomitant]
     Active Substance: SULINDAC
  22. CLEARLAX [Concomitant]
     Active Substance: POLYETHYLENE GLYCOL 3350
  23. ENBREL [Concomitant]
     Active Substance: ETANERCEPT
  24. POLYETH GLYC [Concomitant]
     Active Substance: POLYETHYLENE GLYCOLS

REACTIONS (1)
  - Lower limb fracture [None]

NARRATIVE: CASE EVENT DATE: 20161208
